FAERS Safety Report 23379596 (Version 1)
Quarter: 2024Q1

REPORT INFORMATION
  Report Type: Spontaneous
  Country: HR (occurrence: HR)
  Receive Date: 20240108
  Receipt Date: 20240108
  Transmission Date: 20240410
  Serious: Yes (Other)
  Sender: FDA-Public Use
  Company Number: None

PATIENT
  Age: 36 Year
  Sex: Female

DRUGS (1)
  1. ENBREL [Suspect]
     Active Substance: ETANERCEPT
     Indication: Undifferentiated spondyloarthritis
     Dosage: UNK
     Route: 058
     Dates: start: 20231112

REACTIONS (18)
  - Haemorrhage subcutaneous [Recovered/Resolved]
  - Dysuria [Recovered/Resolved]
  - Fatigue [Recovered/Resolved]
  - C-reactive protein increased [Recovered/Resolved]
  - Pollakiuria [Recovered/Resolved]
  - Feeling cold [Recovered/Resolved]
  - Influenza like illness [Recovered/Resolved]
  - Injection site induration [Recovered/Resolved]
  - Dizziness [Recovered/Resolved]
  - Dyspnoea [Recovered/Resolved]
  - Nausea [Recovered/Resolved]
  - Pain [Recovered/Resolved]
  - Fatigue [Recovered/Resolved]
  - Abdominal pain upper [Recovered/Resolved]
  - Injection site pruritus [Recovered/Resolved]
  - Injection site swelling [Recovered/Resolved]
  - Injection site erythema [Recovered/Resolved]
  - Injection site pain [Recovered/Resolved]

NARRATIVE: CASE EVENT DATE: 20231112
